FAERS Safety Report 4319322-8 (Version None)
Quarter: 2004Q1

REPORT INFORMATION
  Report Type: 
  Country: None (occurrence: None)
  Receive Date: 20040319
  Receipt Date: 20000405
  Transmission Date: 20041129
  Serious: Yes (Death, Hospitalization)
  Sender: FDA-Public Use
  Company Number: T00HQ01464.2

PATIENT
  Age: 73 Year
  Sex: Female
  Weight: 64 kg

DRUGS (2)
  1. TAMOXIFEN CITRATE [Suspect]
     Indication: BREAST CANCER
     Route: 048
     Dates: start: 19990401
  2. MODURETIC 5-50 [Concomitant]
     Indication: HYPERTENSION
     Dosage: UKN,OT
     Route: 065
     Dates: start: 19990401

REACTIONS (4)
  - DYSARTHRIA [None]
  - HEMIPLEGIA [None]
  - ISCHAEMIC STROKE [None]
  - RESPIRATORY TRACT INFECTION [None]
